FAERS Safety Report 18028636 (Version 1)
Quarter: 2020Q3

REPORT INFORMATION
  Report Type: Spontaneous
  Country: NO (occurrence: NO)
  Receive Date: 20200715
  Receipt Date: 20200715
  Transmission Date: 20201103
  Serious: Yes (Hospitalization, Other)
  Sender: FDA-Public Use
  Company Number: NO-ASTRAZENECA-2020SE85752

PATIENT
  Sex: Female

DRUGS (10)
  1. SEROQUEL [Suspect]
     Active Substance: QUETIAPINE FUMARATE
     Indication: ANXIETY
     Dosage: UNKNOWN
     Route: 048
  2. SEROQUEL [Suspect]
     Active Substance: QUETIAPINE FUMARATE
     Indication: HALLUCINATION
     Dosage: 300 MG FOR 3?4 DAYS
     Route: 048
  3. XEPLION [Suspect]
     Active Substance: PALIPERIDONE PALMITATE
     Indication: PSYCHOTIC DISORDER
     Dosage: 150.0MG UNKNOWN
     Route: 030
     Dates: start: 20130820
  4. SEROQUEL [Suspect]
     Active Substance: QUETIAPINE FUMARATE
     Indication: DELUSION
     Dosage: UNKNOWN
     Route: 048
  5. XEPLION [Suspect]
     Active Substance: PALIPERIDONE PALMITATE
     Indication: PSYCHOTIC DISORDER
     Dosage: 50.0MG UNKNOWN
     Route: 030
     Dates: start: 20130827, end: 20130827
  6. SEROQUEL [Suspect]
     Active Substance: QUETIAPINE FUMARATE
     Indication: HALLUCINATION
     Dosage: UNKNOWN
     Route: 048
  7. XEPLION [Suspect]
     Active Substance: PALIPERIDONE PALMITATE
     Indication: DEPRESSION
     Dosage: 150.0MG UNKNOWN
     Route: 030
     Dates: start: 20130820
  8. XEPLION [Suspect]
     Active Substance: PALIPERIDONE PALMITATE
     Indication: DEPRESSION
     Dosage: 50.0MG UNKNOWN
     Route: 030
     Dates: start: 20130827, end: 20130827
  9. SEROQUEL [Suspect]
     Active Substance: QUETIAPINE FUMARATE
     Indication: ANXIETY
     Dosage: 300 MG FOR 3?4 DAYS
     Route: 048
  10. SEROQUEL [Suspect]
     Active Substance: QUETIAPINE FUMARATE
     Indication: DELUSION
     Dosage: 300 MG FOR 3?4 DAYS
     Route: 048

REACTIONS (26)
  - Incorrect dose administered [Unknown]
  - Off label use [Unknown]
  - Respiratory disorder [Unknown]
  - Dysstasia [Unknown]
  - Neuralgia [Unknown]
  - Nausea [Unknown]
  - Cognitive disorder [Unknown]
  - Diarrhoea [Unknown]
  - Memory impairment [Unknown]
  - Vomiting [Unknown]
  - Musculoskeletal stiffness [Unknown]
  - Hyperhidrosis [Unknown]
  - Perineurial cyst [Unknown]
  - Decreased appetite [Unknown]
  - Dyskinesia [Unknown]
  - Constipation [Unknown]
  - Dehydration [Unknown]
  - Nervous system disorder [Unknown]
  - Learning disorder [Unknown]
  - Neuroleptic malignant syndrome [Unknown]
  - Confusional state [Unknown]
  - Pyrexia [Unknown]
  - Electrolyte imbalance [Unknown]
  - Hypotension [Unknown]
  - Palpitations [Unknown]
  - Tremor [Unknown]

NARRATIVE: CASE EVENT DATE: 2013
